FAERS Safety Report 7147829-7 (Version None)
Quarter: 2010Q4

REPORT INFORMATION
  Report Type: 
  Country: None (occurrence: None)
  Receive Date: 20101206
  Receipt Date: 20101206
  Transmission Date: 20110411
  Serious: No
  Sender: FDA-Public Use
  Company Number: None

PATIENT

DRUGS (1)
  1. MAALOX TOTAL RELIEF [Suspect]

REACTIONS (4)
  - ABDOMINAL PAIN UPPER [None]
  - ECONOMIC PROBLEM [None]
  - FAECES DISCOLOURED [None]
  - IMPAIRED WORK ABILITY [None]
